FAERS Safety Report 23226106 (Version 2)
Quarter: 2024Q2

REPORT INFORMATION
  Report Type: Report from Study
  Country: US (occurrence: US)
  Receive Date: 20231124
  Receipt Date: 20240410
  Transmission Date: 20240716
  Serious: Yes (Other)
  Sender: FDA-Public Use
  Company Number: US-002147023-NVSC2023US246609

PATIENT
  Sex: Female

DRUGS (3)
  1. GILENYA [Suspect]
     Active Substance: FINGOLIMOD HYDROCHLORIDE
     Indication: Multiple sclerosis
     Dosage: 0.5 MG, QD
     Route: 048
     Dates: start: 2015
  2. GILENYA [Suspect]
     Active Substance: FINGOLIMOD HYDROCHLORIDE
     Dosage: UNK
     Route: 065
     Dates: start: 2015
  3. MAYZENT [Suspect]
     Active Substance: SIPONIMOD
     Indication: Multiple sclerosis
     Dosage: 2 MG, QD
     Route: 048
     Dates: start: 202312

REACTIONS (11)
  - Secondary progressive multiple sclerosis [Not Recovered/Not Resolved]
  - Fall [Unknown]
  - Memory impairment [Unknown]
  - Brain fog [Unknown]
  - Peroneal nerve palsy [Unknown]
  - Contusion [Unknown]
  - Haemorrhage [Unknown]
  - Inappropriate schedule of product administration [Recovering/Resolving]
  - Insomnia [Unknown]
  - Palpitations [Unknown]
  - Product storage error [Unknown]

NARRATIVE: CASE EVENT DATE: 20180101
